FAERS Safety Report 10210677 (Version 3)
Quarter: 2014Q2

REPORT INFORMATION
  Report Type: Report from Study
  Country: US (occurrence: US)
  Receive Date: 20140602
  Receipt Date: 20140630
  Transmission Date: 20141212
  Serious: Yes (Life-Threatening, Hospitalization, Other)
  Sender: FDA-Public Use
  Company Number: US-ACTELION-A-NJ2014-099530

PATIENT
  Age: 59 Year
  Sex: Male

DRUGS (2)
  1. TRACLEER [Suspect]
     Indication: PULMONARY ARTERIAL HYPERTENSION
     Dosage: UNK
     Route: 048
  2. SILDENAFIL [Concomitant]

REACTIONS (2)
  - Appendicitis [Recovering/Resolving]
  - Atrial fibrillation [Recovering/Resolving]
